FAERS Safety Report 18656360 (Version 1)
Quarter: 2020Q4

REPORT INFORMATION
  Report Type: Report from Study
  Country: US (occurrence: US)
  Receive Date: 20201223
  Receipt Date: 20201223
  Transmission Date: 20210114
  Serious: Yes (Other)
  Sender: FDA-Public Use
  Company Number: US-TAIHO ONCOLOGY  INC-EU-2020-04365

PATIENT
  Sex: Male

DRUGS (12)
  1. FERROUS GLUCONATE [Concomitant]
     Active Substance: FERROUS GLUCONATE
  2. CARVEDILOL. [Concomitant]
     Active Substance: CARVEDILOL
  3. XARELTO [Concomitant]
     Active Substance: RIVAROXABAN
  4. AMOXICILLIN. [Concomitant]
     Active Substance: AMOXICILLIN
  5. LORAZEPAM. [Concomitant]
     Active Substance: LORAZEPAM
  6. GLIMEPIRIDE. [Concomitant]
     Active Substance: GLIMEPIRIDE
  7. IRON [Concomitant]
     Active Substance: IRON
  8. METFORMIN [Concomitant]
     Active Substance: METFORMIN HYDROCHLORIDE
  9. RAMIPRIL. [Concomitant]
     Active Substance: RAMIPRIL
  10. LONSURF [Suspect]
     Active Substance: TIPIRACIL HYDROCHLORIDE\TRIFLURIDINE
     Indication: COLON CANCER
     Dosage: CYCLE UNKNOWN
     Route: 048
     Dates: start: 20201016
  11. CHOLECAL [Concomitant]
  12. ATORVASTATIN [Concomitant]
     Active Substance: ATORVASTATIN

REACTIONS (1)
  - Haemorrhage [Not Recovered/Not Resolved]
